FAERS Safety Report 4426723-6 (Version None)
Quarter: 2004Q3

REPORT INFORMATION
  Report Type: 
  Country: None (occurrence: None)
  Receive Date: 20040816
  Receipt Date: 20020304
  Transmission Date: 20050211
  Serious: Yes (Hospitalization)
  Sender: FDA-Public Use
  Company Number: GB-ROCHE-308521

PATIENT
  Age: 12 Year
  Sex: Male
  Weight: 43 kg

DRUGS (1)
  1. LARIAM [Suspect]
     Indication: PROPHYLAXIS
     Route: 048
     Dates: start: 20020203, end: 20020225

REACTIONS (8)
  - ABDOMINAL PAIN [None]
  - BALANCE DISORDER [None]
  - HEADACHE [None]
  - MALAISE [None]
  - MUSCLE TWITCHING [None]
  - PYREXIA [None]
  - SLEEP DISORDER [None]
  - VOMITING [None]
